FAERS Safety Report 5741153-2 (Version None)
Quarter: 2008Q2

REPORT INFORMATION
  Report Type: 
  Country: None (occurrence: None)
  Receive Date: 20080516
  Receipt Date: 20080508
  Transmission Date: 20081010
  Serious: Yes (Hospitalization, Other)
  Sender: FDA-Public Use
  Company Number: US-PFIZER INC-2008040557

PATIENT
  Sex: Female
  Weight: 90.909 kg

DRUGS (12)
  1. CHANTIX [Suspect]
     Indication: SMOKING CESSATION THERAPY
  2. SOLU-MEDROL [Suspect]
     Indication: BRONCHITIS
     Route: 042
  3. ABILIFY [Concomitant]
  4. TRAZODONE HCL [Concomitant]
  5. KLONOPIN [Concomitant]
  6. NEXIUM [Concomitant]
  7. PERCOCET [Concomitant]
     Indication: ARTHROPATHY
  8. FLOVENT [Concomitant]
  9. ALBUTEROL [Concomitant]
  10. LIPITOR [Concomitant]
  11. VISTARIL [Concomitant]
  12. ALL OTHER THERAPEUTIC PRODUCTS [Concomitant]

REACTIONS (4)
  - BRONCHITIS [None]
  - CHOKING [None]
  - IMPAIRED HEALING [None]
  - WHEEZING [None]
